FAERS Safety Report 21944461 (Version 2)
Quarter: 2023Q2

REPORT INFORMATION
  Report Type: Spontaneous
  Country: US (occurrence: US)
  Receive Date: 20230202
  Receipt Date: 20230426
  Transmission Date: 20230722
  Serious: No
  Sender: FDA-Public Use
  Company Number: US-002147023-NVSC2022US277869

PATIENT
  Sex: Female

DRUGS (7)
  1. AMOXICILLIN [Suspect]
     Active Substance: AMOXICILLIN
     Indication: Product used for unknown indication
     Dosage: 1000 MG, Q12H
     Route: 065
     Dates: start: 20220206
  2. AMOXICILLIN [Suspect]
     Active Substance: AMOXICILLIN
     Dosage: 1000 MG, Q12H
     Route: 065
     Dates: start: 20220408
  3. AMOXICILLIN [Suspect]
     Active Substance: AMOXICILLIN
     Dosage: 1000 MG, Q12H
     Route: 065
     Dates: start: 20220711
  4. CLAVULANATE POTASSIUM [Suspect]
     Active Substance: CLAVULANATE POTASSIUM
     Indication: Product used for unknown indication
     Dosage: 62.5 MG, Q12H
     Route: 065
     Dates: start: 20220206
  5. CLAVULANATE POTASSIUM [Suspect]
     Active Substance: CLAVULANATE POTASSIUM
     Dosage: 62.5 MG, Q12H
     Route: 065
     Dates: start: 20220408
  6. CLAVULANATE POTASSIUM [Suspect]
     Active Substance: CLAVULANATE POTASSIUM
     Dosage: 62.5 MG, Q12H
     Route: 065
     Dates: start: 20220711
  7. ENOXAPARIN SODIUM [Suspect]
     Active Substance: ENOXAPARIN SODIUM
     Indication: Product used for unknown indication
     Dosage: UNK
     Route: 065

REACTIONS (2)
  - Constipation [Unknown]
  - Headache [Unknown]
